FAERS Safety Report 7332147-4 (Version None)
Quarter: 2011Q1

REPORT INFORMATION
  Report Type: 
  Country: None (occurrence: None)
  Receive Date: 20110304
  Receipt Date: 20110228
  Transmission Date: 20110831
  Serious: Yes (Death, Life-Threatening, Hospitalization, Other)
  Sender: FDA-Public Use
  Company Number: PHHY2010US31635

PATIENT
  Sex: Female
  Weight: 58 kg

DRUGS (15)
  1. EXJADE [Suspect]
     Indication: ACUTE MYELOID LEUKAEMIA
     Dosage: 500 MG, DAILY
     Route: 048
     Dates: start: 20100324
  2. COLACE [Concomitant]
  3. DACOGEN [Concomitant]
     Dosage: UNK
     Dates: start: 20100419
  4. ANTINEOPLASTIC AGENTS [Concomitant]
     Dosage: UNK
  5. ANALGESICS [Concomitant]
     Dosage: UNK
  6. ACETAMINOPHEN [Concomitant]
     Dosage: 500 MG EVERY 4 HOUR WHEN NEEDED
     Route: 048
  7. BENTYL [Concomitant]
     Dosage: 20 MG, UNK
     Route: 048
     Dates: start: 20101207
  8. NEUMETHA [Concomitant]
     Dosage: 300 MG, AT BED TIME
     Route: 048
     Dates: start: 20101001
  9. SLOW-MAG [Concomitant]
  10. EXJADE [Suspect]
     Indication: IRON OVERLOAD
  11. TESSALON [Concomitant]
  12. VALTREX [Concomitant]
     Indication: HERPES ZOSTER
     Dosage: 1000 MG, BID
     Route: 048
     Dates: start: 20100407, end: 20100414
  13. TEGRETOL [Concomitant]
  14. PROCHLORPERAZINE [Concomitant]
  15. ZOFRAN [Concomitant]

REACTIONS (6)
  - EPISTAXIS [None]
  - NEOPLASM MALIGNANT [None]
  - GENERAL PHYSICAL HEALTH DETERIORATION [None]
  - INFECTION [None]
  - PLATELET COUNT DECREASED [None]
  - RENAL FAILURE [None]
